FAERS Safety Report 8408014-1 (Version None)
Quarter: 2012Q2

REPORT INFORMATION
  Report Type: 
  Country: None (occurrence: None)
  Receive Date: 20120604
  Receipt Date: 20120525
  Transmission Date: 20120825
  Serious: Yes (Hospitalization, Disabling)
  Sender: FDA-Public Use
  Company Number: US-MERCK-1111USA02617

PATIENT
  Age: 56 Year
  Sex: Female
  Weight: 55 kg

DRUGS (6)
  1. BONIVA [Suspect]
     Indication: OSTEOPOROSIS
     Route: 048
     Dates: start: 20061201, end: 20070701
  2. FOSAMAX PLUS D [Suspect]
     Route: 048
     Dates: start: 20080601
  3. ACTONEL [Suspect]
     Indication: OSTEOPOROSIS
     Route: 048
     Dates: start: 20050505
  4. FOSAMAX [Suspect]
     Indication: OSTEOPOROSIS
     Route: 048
     Dates: start: 20070802
  5. ALENDRONATE SODIUM [Suspect]
     Route: 065
     Dates: start: 20100501
  6. FOSAMAX [Suspect]
     Route: 048
     Dates: start: 20071201

REACTIONS (11)
  - OSTEOARTHRITIS [None]
  - MALAISE [None]
  - RALES [None]
  - GALLBLADDER DISORDER [None]
  - HERNIA [None]
  - DRUG INTOLERANCE [None]
  - DEPRESSION [None]
  - FEMUR FRACTURE [None]
  - ANXIETY [None]
  - MUSCLE SPASMS [None]
  - OSTEOPENIA [None]
